FAERS Safety Report 13797643 (Version 1)
Quarter: 2017Q3

REPORT INFORMATION
  Report Type: Spontaneous
  Country: US (occurrence: US)
  Receive Date: 20170726
  Receipt Date: 20170726
  Transmission Date: 20171127
  Serious: Yes (Hospitalization)
  Sender: FDA-Public Use
  Company Number: None

PATIENT
  Age: 1 Year
  Sex: Male

DRUGS (1)
  1. AFINITOR DISPERZ [Suspect]
     Active Substance: EVEROLIMUS

REACTIONS (5)
  - Platelet count increased [None]
  - Seizure [None]
  - Stomatitis [None]
  - Pyrexia [None]
  - White blood cell count increased [None]

NARRATIVE: CASE EVENT DATE: 20170726
